FAERS Safety Report 9278198 (Version 1)
Quarter: 2013Q2

REPORT INFORMATION
  Report Type: Spontaneous
  Country: ES (occurrence: ES)
  Receive Date: 20130508
  Receipt Date: 20130508
  Transmission Date: 20140414
  Serious: Yes (Other)
  Sender: FDA-Public Use
  Company Number: ES-BRISTOL-MYERS SQUIBB COMPANY-18843730

PATIENT
  Sex: Female
  Weight: 120 kg

DRUGS (5)
  1. BYETTA [Suspect]
  2. METFORMIN [Concomitant]
  3. OMEPRAZOLE [Concomitant]
  4. PARACETAMOL [Concomitant]
  5. VITAMIN D [Concomitant]

REACTIONS (2)
  - Blood triglycerides increased [Unknown]
  - Weight decreased [Unknown]
